FAERS Safety Report 8060551-8 (Version None)
Quarter: 2012Q1

REPORT INFORMATION
  Report Type: 
  Country: None (occurrence: None)
  Receive Date: 20120120
  Receipt Date: 20120112
  Transmission Date: 20120608
  Serious: Yes (Hospitalization)
  Sender: FDA-Public Use
  Company Number: CHPA2012US001104

PATIENT
  Age: 40 Year
  Sex: Female

DRUGS (3)
  1. EXCEDRIN (MIGRAINE) [Suspect]
     Indication: MIGRAINE
     Dosage: 2 DF, QD OR BID
     Route: 048
     Dates: start: 20090101
  2. EXCEDRIN (MIGRAINE) [Suspect]
     Dosage: 2 DF, PRN
     Route: 048
     Dates: start: 20000101, end: 20090101
  3. MULTI-VITAMINS [Concomitant]

REACTIONS (3)
  - OVERDOSE [None]
  - UTERINE LEIOMYOMA [None]
  - MIGRAINE [None]
